FAERS Safety Report 24638566 (Version 2)
Quarter: 2024Q4

REPORT INFORMATION
  Report Type: Spontaneous
  Country: US (occurrence: US)
  Receive Date: 20241119
  Receipt Date: 20241210
  Transmission Date: 20250115
  Serious: No
  Sender: BIOMARIN
  Company Number: US-BIOMARINAP-US-2024-161826

PATIENT

DRUGS (2)
  1. PALYNZIQ [Suspect]
     Active Substance: PEGVALIASE-PQPZ
     Indication: Phenylketonuria
     Dosage: 20 MILLIGRAM, QD
     Route: 058
     Dates: start: 20241101
  2. PALYNZIQ [Suspect]
     Active Substance: PEGVALIASE-PQPZ
     Dosage: UNK
     Route: 058
     Dates: start: 20240829

REACTIONS (7)
  - Joint warmth [Recovered/Resolved]
  - Pain in jaw [Recovered/Resolved]
  - Myalgia [Recovered/Resolved]
  - Arthralgia [Recovered/Resolved]
  - Pain in extremity [Recovered/Resolved]
  - Musculoskeletal stiffness [Recovered/Resolved]
  - Joint swelling [Recovered/Resolved]

NARRATIVE: CASE EVENT DATE: 20241101
